FAERS Safety Report 10004911 (Version 1)
Quarter: 2014Q1

REPORT INFORMATION
  Report Type: Spontaneous
  Country: US (occurrence: US)
  Receive Date: 20140312
  Receipt Date: 20140312
  Transmission Date: 20141002
  Serious: Yes (Hospitalization, Other)
  Sender: FDA-Public Use
  Company Number: US-BAYER-2014-035044

PATIENT
  Age: 26 Year
  Sex: Female

DRUGS (7)
  1. YAZ [Suspect]
  2. TOPIRAMATE [Concomitant]
     Dosage: 75 MG, BID
     Route: 048
     Dates: start: 20080302
  3. TOPIRAMATE [Concomitant]
     Dosage: 75 MG, BID
     Route: 048
     Dates: start: 20080405
  4. BUTALBITAL, ACETAMINOPHEN + CAFFEINE [Concomitant]
     Dosage: UNK
     Route: 048
     Dates: start: 20080401
  5. BUTALBITAL, ACETAMINOPHEN + CAFFEINE [Concomitant]
     Dosage: UNK
     Route: 048
     Dates: start: 20080405
  6. VICODIN [Concomitant]
     Indication: MIGRAINE
  7. REGLAN [Concomitant]
     Route: 042

REACTIONS (2)
  - Superior sagittal sinus thrombosis [None]
  - Cerebrovascular accident [None]
